FAERS Safety Report 16278481 (Version 2)
Quarter: 2019Q2

REPORT INFORMATION
  Report Type: Report from Study
  Country: US (occurrence: US)
  Receive Date: 20190506
  Receipt Date: 20190613
  Transmission Date: 20190711
  Serious: Yes (Other)
  Sender: FDA-Public Use
  Company Number: US-MYLANLABS-2019M1040171

PATIENT
  Sex: Female

DRUGS (1)
  1. GLATIRAMER ACETATE INJECTION [Suspect]
     Active Substance: GLATIRAMER ACETATE
     Indication: RELAPSING-REMITTING MULTIPLE SCLEROSIS
     Dosage: 40 MILLIGRAM, Q3W
     Route: 058

REACTIONS (8)
  - Visual impairment [Unknown]
  - Injection site bruising [Unknown]
  - Multiple sclerosis [Unknown]
  - Fatigue [Unknown]
  - Dysgraphia [Unknown]
  - Gait disturbance [Unknown]
  - Asthenia [Unknown]
  - Drug ineffective [Not Recovered/Not Resolved]
